FAERS Safety Report 7468259-4 (Version None)
Quarter: 2011Q2

REPORT INFORMATION
  Report Type: 
  Country: None (occurrence: None)
  Receive Date: 20110509
  Receipt Date: 20100811
  Transmission Date: 20111010
  Serious: Yes (Other)
  Sender: FDA-Public Use
  Company Number: PHHY2010NO53104

PATIENT
  Sex: Female

DRUGS (3)
  1. CARBAMAZEPINE [Suspect]
     Indication: EPILEPSY
     Dosage: UNK
  2. ASPIRIN [Concomitant]
     Dosage: 75 MG ODI
  3. DALTEPARIN [Concomitant]
     Dosage: 120 MG BD AND 100MG THRICE DAILY
     Route: 058

REACTIONS (2)
  - CARDIAC VALVE REPLACEMENT COMPLICATION [None]
  - DRUG EXPOSURE DURING PREGNANCY [None]
